FAERS Safety Report 19679129 (Version 2)
Quarter: 2021Q4

REPORT INFORMATION
  Report Type: Spontaneous
  Country: US (occurrence: US)
  Receive Date: 20210809
  Receipt Date: 20211002
  Transmission Date: 20220303
  Serious: No
  Sender: FDA-Public Use
  Company Number: US-JNJFOC-20210748215

PATIENT
  Age: 63 Year
  Sex: Female

DRUGS (5)
  1. WOMENS ROGAINE [Suspect]
     Active Substance: MINOXIDIL
     Indication: Alopecia
     Dosage: DOSE: ONE DROPPER FULL?USED PRODUCT ONLY FOR FOUR DAYS
     Route: 061
     Dates: start: 20210301, end: 20210304
  2. WOMENS ROGAINE [Suspect]
     Active Substance: MINOXIDIL
     Dosage: DOSE: ONE DROPPER FULL
     Route: 061
  3. WOMENS ROGAINE [Suspect]
     Active Substance: MINOXIDIL
     Dosage: DOSE: ONE DROPPER FULL
     Route: 061
     Dates: start: 20210201, end: 2021
  4. LEVOTHYROXINE [Concomitant]
     Active Substance: LEVOTHYROXINE
     Indication: Product used for unknown indication
     Route: 065
  5. FLUTICASONE [Concomitant]
     Active Substance: FLUTICASONE
     Indication: Multiple allergies
     Route: 065

REACTIONS (3)
  - Application site pruritus [Recovered/Resolved]
  - Inappropriate schedule of product administration [Unknown]
  - Underdose [Unknown]

NARRATIVE: CASE EVENT DATE: 20210201
